FAERS Safety Report 6370930-2 (Version None)
Quarter: 2009Q3

REPORT INFORMATION
  Report Type: 
  Country: None (occurrence: None)
  Receive Date: 20090923
  Receipt Date: 20071203
  Transmission Date: 20100115
  Serious: No
  Sender: FDA-Public Use
  Company Number: US-ASTRAZENECA-2006UW23058

PATIENT
  Age: 41 Year
  Sex: Female
  Weight: 122 kg

DRUGS (18)
  1. SEROQUEL [Suspect]
     Indication: DEPRESSION
     Route: 048
     Dates: start: 20050101, end: 20060101
  2. SEROQUEL [Suspect]
     Indication: BIPOLAR DISORDER
     Route: 048
     Dates: start: 20050101, end: 20060101
  3. SEROQUEL [Suspect]
     Indication: SLEEP DISORDER
     Route: 048
     Dates: start: 20050101, end: 20060101
  4. SEROQUEL [Suspect]
     Dosage: 100 MG - 600 MG DAILY
     Route: 048
     Dates: start: 20051109, end: 20060620
  5. SEROQUEL [Suspect]
     Dosage: 100 MG - 600 MG DAILY
     Route: 048
     Dates: start: 20051109, end: 20060620
  6. SEROQUEL [Suspect]
     Dosage: 100 MG - 600 MG DAILY
     Route: 048
     Dates: start: 20051109, end: 20060620
  7. ZYPREXA [Concomitant]
     Dates: start: 20000101, end: 20040101
  8. LISINOPRIL [Concomitant]
     Route: 048
     Dates: start: 20060410
  9. HYDROCHLOROTHIAZIDE [Concomitant]
     Route: 048
     Dates: start: 20060410
  10. METFORMIN HCL [Concomitant]
     Route: 048
     Dates: start: 20060410
  11. LAMICTAL [Concomitant]
     Route: 048
     Dates: start: 20070215
  12. BENADRYL [Concomitant]
     Indication: INSOMNIA
     Route: 048
     Dates: start: 20060804
  13. LEXAPRO [Concomitant]
     Route: 048
     Dates: start: 20060410
  14. DIAZEPAM [Concomitant]
     Indication: INSOMNIA
     Route: 048
     Dates: start: 20070227
  15. FLEXERIL [Concomitant]
     Route: 048
     Dates: start: 20070227
  16. ETODOLAC [Concomitant]
     Route: 048
     Dates: start: 20070227
  17. NAPROSYN [Concomitant]
     Route: 048
     Dates: start: 20060410
  18. ARTHROTEC [Concomitant]
     Route: 048
     Dates: start: 20060410

REACTIONS (4)
  - DIABETES MELLITUS [None]
  - HYPERGLYCAEMIA [None]
  - METABOLIC SYNDROME [None]
  - TYPE 2 DIABETES MELLITUS [None]
